FAERS Safety Report 6687257-1 (Version None)
Quarter: 2010Q2

REPORT INFORMATION
  Report Type: 
  Country: None (occurrence: None)
  Receive Date: 20100419
  Receipt Date: 20100407
  Transmission Date: 20101027
  Serious: No
  Sender: FDA-Public Use
  Company Number: US-B.I. PHARMACEUTICALS,INC./RIDGEFIELD-2010-BP-03979BP

PATIENT
  Age: 71 Year
  Sex: Male

DRUGS (2)
  1. FLOMAX [Suspect]
     Indication: BENIGN PROSTATIC HYPERPLASIA
     Dosage: 0.4 MG
     Route: 048
     Dates: end: 20100201
  2. FLOMAX [Suspect]
     Dosage: 0.8 MG
     Route: 048
     Dates: start: 20100401

REACTIONS (4)
  - DRUG INEFFECTIVE [None]
  - GROIN PAIN [None]
  - OEDEMA MOUTH [None]
  - PAIN IN EXTREMITY [None]
